FAERS Safety Report 7634375-7 (Version None)
Quarter: 2011Q3

REPORT INFORMATION
  Report Type: 
  Country: None (occurrence: None)
  Receive Date: 20110725
  Receipt Date: 20100609
  Transmission Date: 20111222
  Serious: Yes (Other)
  Sender: FDA-Public Use
  Company Number: US-BAYER-2011-038048

PATIENT
  Sex: Male
  Weight: 86.168 kg

DRUGS (14)
  1. GADOLINIUM IN UNSPECIFIED DRUG [Suspect]
     Indication: NUCLEAR MAGNETIC RESONANCE IMAGING BRAIN
     Dosage: UNK, ONCE
     Dates: start: 20030925, end: 20030925
  2. ANTIHYPERTENSIVES [Concomitant]
     Indication: BLOOD PRESSURE ABNORMAL
     Dosage: UNK
     Dates: start: 20000101, end: 20100101
  3. NEPHROCAPS [Concomitant]
     Indication: VITAMIN SUPPLEMENTATION
     Dosage: ONE DAILY
  4. RENAL CAPS [Concomitant]
     Indication: HYPOVITAMINOSIS
     Dosage: 1 MG, QD
  5. ASPIRIN [Concomitant]
  6. RENAGEL [Concomitant]
  7. SENSIPAR [Concomitant]
     Indication: DIALYSIS
     Dosage: 30 MG, QD
  8. AMLODIPINE BESYLATE [Concomitant]
     Indication: BLOOD PRESSURE ABNORMAL
     Dosage: 10 MG, QD
  9. PAIN MEDICATION [Concomitant]
     Indication: PAIN
     Dosage: UNK
     Dates: start: 20000101
  10. BLOOD THINNERS (NOS) [Concomitant]
     Indication: CEREBROVASCULAR ACCIDENT PROPHYLAXIS
     Dosage: UNK
     Dates: start: 20000101, end: 20100101
  11. NORVASC [Concomitant]
  12. GADOLINIUM IN UNSPECIFIED DRUG [Suspect]
     Indication: ANGIOGRAM
     Dosage: UNK UNK, ONCE
     Dates: start: 20070707, end: 20070707
  13. CHOLESTEROL MEDICATION (NOS) [Concomitant]
     Indication: HYPERCHOLESTEROLAEMIA
     Dosage: UNK
     Dates: start: 19990101, end: 20060101
  14. PLAVIX [Concomitant]

REACTIONS (12)
  - RENAL IMPAIRMENT [None]
  - FEAR [None]
  - RENAL INJURY [None]
  - SKIN INDURATION [None]
  - SKIN TIGHTNESS [None]
  - NEPHROGENIC SYSTEMIC FIBROSIS [None]
  - JOINT CONTRACTURE [None]
  - DISCOMFORT [None]
  - ANHEDONIA [None]
  - MOBILITY DECREASED [None]
  - SWELLING [None]
  - PAIN [None]
